FAERS Safety Report 9204753 (Version 2)
Quarter: 2013Q4

REPORT INFORMATION
  Report Type: Spontaneous
  Country: US (occurrence: US)
  Receive Date: 20130402
  Receipt Date: 20131108
  Transmission Date: 20140711
  Serious: Yes (Hospitalization, Disabling)
  Sender: FDA-Public Use
  Company Number: US-BAYER-2013-039214

PATIENT
  Age: 27 Year
  Sex: Female

DRUGS (13)
  1. YAZ [Suspect]
     Dosage: UNK
     Dates: start: 2004, end: 2012
  2. YASMIN [Suspect]
     Dosage: UNK
     Dates: start: 2004, end: 2012
  3. OCELLA [Suspect]
     Dosage: UNK
     Dates: start: 2004, end: 2012
  4. ALPRAZOLAM [Concomitant]
  5. LAMOTRIGINE [Concomitant]
  6. ACETAMINOPHEN W/OXYCODONE [Concomitant]
     Route: 048
  7. CLINDAMYCIN [Concomitant]
  8. ROXICET [Concomitant]
     Dosage: 5-325MG
  9. ONDANSETRON [Concomitant]
  10. PERCOCET [Concomitant]
  11. ZOFRAN [Concomitant]
  12. DESMOPRESSIN [Concomitant]
  13. HAEM ARGINATE [Concomitant]

REACTIONS (7)
  - Gallbladder disorder [None]
  - Cholecystitis chronic [None]
  - Deformity [None]
  - Anxiety [None]
  - Injury [None]
  - Pain [None]
  - Anhedonia [None]
